FAERS Safety Report 25547106 (Version 6)
Quarter: 2025Q3

REPORT INFORMATION
  Report Type: Report from Study
  Country: US (occurrence: US)
  Receive Date: 20250714
  Receipt Date: 20250902
  Transmission Date: 20251020
  Serious: No
  Sender: ACADIA PHARMACEUTICALS
  Company Number: US-ACADIA PHARMACEUTICALS INC.-ACA-2025-PIM-008170

PATIENT
  Age: 64 Year
  Sex: Male

DRUGS (16)
  1. NUPLAZID [Suspect]
     Active Substance: PIMAVANSERIN TARTRATE
     Indication: Parkinson^s disease psychosis
     Dosage: 34 MILLIGRAM, QD (TAKE 1 (ONE) CAPSULE BY MOUTH ONCE DAILY SPECIAL MEDICINE)
     Route: 048
     Dates: start: 20230331
  2. NUPLAZID [Suspect]
     Active Substance: PIMAVANSERIN TARTRATE
     Dosage: 34 MILLIGRAM, QD
     Route: 048
  3. TYLENOL [Concomitant]
     Active Substance: ACETAMINOPHEN
     Indication: Pyrexia
     Route: 048
  4. TYLENOL [Concomitant]
     Active Substance: ACETAMINOPHEN
     Indication: Pain
  5. TENORMIN [Concomitant]
     Active Substance: ATENOLOL
     Indication: Hypertension
     Dosage: 1 DOSAGE FORM, QD (TAKE 1 (ONE) TABLET BY MOUTH ONCE DAILY)
     Route: 048
  6. LIPITOR [Concomitant]
     Active Substance: ATORVASTATIN CALCIUM
     Indication: Hyperlipidaemia
     Dosage: 1 DOSAGE FORM  TAKE 1 (ONE) TABLET BY MOUTH AT BEDTIME)
     Route: 048
  7. SINEMET [Concomitant]
     Active Substance: CARBIDOPA\LEVODOPA
     Route: 048
  8. KLONOPIN [Concomitant]
     Active Substance: CLONAZEPAM
     Dosage: 1 DOSAGE FORM, TAKE 1 (ONE) TABLET BY MOUTH AT BEDTIME
     Route: 048
  9. VOLTAREN [Concomitant]
     Active Substance: DICLOFENAC SODIUM
     Dosage: 1 DOSAGE FORM, TAKE 1 (ONE) TABLET BY MOUTH 2 TIMES DAILY
     Route: 048
  10. COMTAN [Concomitant]
     Active Substance: ENTACAPONE
     Dosage: TAKE 1 (ONE) TABLET BY MOUTH 3 TIMES DAILY
     Route: 048
  11. VITAMINS [Concomitant]
     Active Substance: VITAMINS
     Dosage: TAKE BY MOUTH DAILY WITH FOOD
     Route: 048
  12. PROBIOTICS [PROBIOTICS NOS] [Concomitant]
  13. EXELON [Concomitant]
     Active Substance: RIVASTIGMINE TARTRATE
     Indication: Dementia
     Route: 062
  14. NEUPRO [Concomitant]
     Active Substance: ROTIGOTINE
     Indication: Parkinson^s disease
     Dosage: APPLY 1 (ONE) PATCH TO SKIN ONCE DAILY, 24HOUR PATCH
     Route: 062
  15. FLOMAX [Concomitant]
     Active Substance: TAMSULOSIN HYDROCHLORIDE
     Dosage: 1 DOSAGE FORM, QD
     Route: 048
  16. ZINCATE [Concomitant]
     Dosage: 1 DOSAGE FORM QD, 220 (50 ZN) MG CAPSULE
     Route: 048

REACTIONS (3)
  - Memory impairment [Not Recovered/Not Resolved]
  - Malaise [Unknown]
  - Product use issue [Not Recovered/Not Resolved]

NARRATIVE: CASE EVENT DATE: 20250601
